FAERS Safety Report 4817231-9 (Version None)
Quarter: 2005Q4

REPORT INFORMATION
  Report Type: 
  Country: None (occurrence: None)
  Receive Date: 20051101
  Receipt Date: 20051020
  Transmission Date: 20060501
  Serious: Yes (Hospitalization, Disabling)
  Sender: FDA-Public Use
  Company Number: KR-JNJFOC-20050905820

PATIENT
  Sex: Male

DRUGS (5)
  1. REMINYL [Suspect]
     Indication: DEMENTIA
     Route: 048
  2. ZOLOFT [Concomitant]
     Indication: DEPRESSED MOOD
     Route: 048
  3. SEROXAT [Concomitant]
     Indication: DEPRESSED MOOD
     Route: 048
  4. URSA [Concomitant]
     Indication: LIVER DISORDER
     Route: 048
  5. SYLCON [Concomitant]
     Indication: CONSTIPATION
     Route: 048

REACTIONS (3)
  - HAEMORRHAGE INTRACRANIAL [None]
  - HEAD INJURY [None]
  - SUBDURAL HAEMATOMA [None]
